FAERS Safety Report 4678068-7 (Version None)
Quarter: 2005Q2

REPORT INFORMATION
  Report Type: 
  Country: None (occurrence: None)
  Receive Date: 20050601
  Receipt Date: 20050301
  Transmission Date: 20051028
  Serious: Yes (Hospitalization)
  Sender: FDA-Public Use
  Company Number: DE-SANOFI-SYNTHELABO-A04200500197

PATIENT
  Sex: Male
  Weight: 73 kg

DRUGS (2)
  1. UROXATRAL [Suspect]
     Indication: DYSURIA
     Route: 048
     Dates: start: 20050201, end: 20050212
  2. UROXATRAL [Suspect]
     Indication: BENIGN PROSTATIC HYPERPLASIA
     Route: 048
     Dates: start: 20050201, end: 20050212

REACTIONS (12)
  - AMNESIA [None]
  - ASTHENIA [None]
  - CIRCULATORY COLLAPSE [None]
  - CONVULSION [None]
  - DISTURBANCE IN ATTENTION [None]
  - DIZZINESS [None]
  - ENURESIS [None]
  - EXCORIATION [None]
  - FALL [None]
  - LACERATION [None]
  - MALAISE [None]
  - SYNCOPE [None]
